FAERS Safety Report 11790453 (Version 1)
Quarter: 2015Q4

REPORT INFORMATION
  Report Type: Spontaneous
  Country: GB (occurrence: GB)
  Receive Date: 20151201
  Receipt Date: 20151201
  Transmission Date: 20160305
  Serious: Yes (Other)
  Sender: FDA-Public Use
  Company Number: GB-BAYER-2015-474602

PATIENT
  Age: 35 Year
  Sex: Female
  Weight: 48 kg

DRUGS (1)
  1. GADOVIST 1.0 MMOL/ML SOLUTION FOR INJECTION [Suspect]
     Active Substance: GADOBUTROL
     Dosage: 4.8 ML, ONCE
     Route: 042
     Dates: start: 20151015, end: 20151015

REACTIONS (2)
  - Laryngeal discomfort [Recovered/Resolved]
  - Dysphagia [Recovered/Resolved]

NARRATIVE: CASE EVENT DATE: 20151015
